FAERS Safety Report 5052640-7 (Version None)
Quarter: 2006Q2

REPORT INFORMATION
  Report Type: 
  Country: None (occurrence: None)
  Receive Date: 20060614
  Receipt Date: 20060317
  Transmission Date: 20061013
  Serious: Yes (Other)
  Sender: FDA-Public Use
  Company Number: 441057

PATIENT
  Age: 77 Year
  Sex: Female

DRUGS (12)
  1. BONIVA [Suspect]
     Indication: OSTEOPOROSIS
     Dosage: 150 MG 1 PER MONTH ORAL
     Route: 048
     Dates: start: 20051115
  2. NEXIUM [Concomitant]
  3. PRAVACHOL [Concomitant]
  4. PLAVIX [Concomitant]
  5. ASPIRIN [Concomitant]
  6. CALCIUM GLUCONATE [Concomitant]
  7. VITAMIN [Concomitant]
  8. NEURONTIN [Concomitant]
  9. PROZAC [Concomitant]
  10. PLAQUINOL (HYDROXYCHLOROQUINE SULFATE) [Concomitant]
  11. STOOL SOFTENER [Concomitant]
  12. ASPIRIN [Concomitant]

REACTIONS (4)
  - ABDOMINAL DISTENSION [None]
  - DYSPEPSIA [None]
  - GASTROOESOPHAGEAL REFLUX DISEASE [None]
  - WEIGHT INCREASED [None]
